FAERS Safety Report 8742965 (Version 2)
Quarter: 2012Q4

REPORT INFORMATION
  Report Type: Report from Study
  Country: DK (occurrence: JP)
  Receive Date: 20120824
  Receipt Date: 20120911
  Transmission Date: 20130627
  Serious: Yes (Life-Threatening)
  Sender: FDA-Public Use
  Company Number: JP-FRI-1000037753

PATIENT
  Age: 34 Year
  Sex: Male

DRUGS (4)
  1. ESCITALOPRAM [Suspect]
     Indication: DEPRESSION
     Dosage: 10 mg
     Route: 048
     Dates: start: 20120724
  2. SOLANAX [Concomitant]
     Indication: INSOMNIA
     Dosage: 0.4 mg
     Route: 048
     Dates: start: 20120724
  3. HUSCODE [Concomitant]
     Dosage: 9 dosage forms
     Route: 048
     Dates: start: 20120721
  4. GENINAX [Concomitant]
     Dosage: 400 mg
     Route: 048
     Dates: start: 2012

REACTIONS (8)
  - Activation syndrome [Unknown]
  - Palpitations [Unknown]
  - Nausea [Unknown]
  - Dizziness [Unknown]
  - Suicide attempt [None]
  - Delirium [None]
  - Insomnia [None]
  - Memory impairment [None]
